FAERS Safety Report 9737294 (Version 1)
Quarter: 2013Q4

REPORT INFORMATION
  Report Type: Spontaneous
  Country: US (occurrence: US)
  Receive Date: 20131206
  Receipt Date: 20131206
  Transmission Date: 20140711
  Serious: No
  Sender: FDA-Public Use
  Company Number: US-BIOGENIDEC-2013BI095411

PATIENT
  Age: 54 Year
  Sex: Female

DRUGS (7)
  1. TECFIDERA [Suspect]
     Indication: MULTIPLE SCLEROSIS
     Route: 048
     Dates: start: 20130514, end: 20130806
  2. SYNTHROID [Concomitant]
     Indication: HYPOTHYROIDISM
  3. GABAPENTIN [Concomitant]
     Route: 048
  4. CLONAZEPAM [Concomitant]
     Route: 048
  5. ISONIAZID [Concomitant]
     Indication: PROPHYLAXIS
  6. PYRIDOXINE [Concomitant]
     Indication: PROPHYLAXIS
  7. LORAZEPAM [Concomitant]
     Indication: INSOMNIA
     Route: 048

REACTIONS (1)
  - Multiple sclerosis relapse [Recovered/Resolved]
